FAERS Safety Report 7263155-X (Version None)
Quarter: 2011Q1

REPORT INFORMATION
  Report Type: 
  Country: None (occurrence: None)
  Receive Date: 20110130
  Receipt Date: 20101022
  Transmission Date: 20110831
  Serious: No
  Sender: FDA-Public Use
  Company Number: US-ABBOTT-10P-163-0680395-00

PATIENT
  Sex: Female
  Weight: 54.48 kg

DRUGS (8)
  1. LEXAPRO [Concomitant]
     Indication: DEPRESSION
  2. NEXIUM [Concomitant]
     Indication: ABDOMINAL DISCOMFORT
  3. ALPRAZOLAM [Concomitant]
     Indication: ANXIETY
  4. FABB VITAMINS [Concomitant]
     Indication: MEDICAL DIET
  5. HUMIRA [Suspect]
     Indication: RHEUMATOID ARTHRITIS
     Dates: start: 20050101
  6. WELLBUTRIN [Concomitant]
     Indication: DEPRESSION
  7. ACCUPRIL [Concomitant]
     Indication: HYPERTENSION
  8. METHOTREXATE [Concomitant]
     Indication: RHEUMATOID ARTHRITIS

REACTIONS (11)
  - JOINT DISLOCATION [None]
  - SJOGREN'S SYNDROME [None]
  - DRY EYE [None]
  - FALL [None]
  - TOOTH FRACTURE [None]
  - FIBROMYALGIA [None]
  - ARTHRALGIA [None]
  - RAYNAUD'S PHENOMENON [None]
  - BONE DENSITY INCREASED [None]
  - GINGIVAL PAIN [None]
  - SKIN DISCOLOURATION [None]
